FAERS Safety Report 15250647 (Version 2)
Quarter: 2018Q3

REPORT INFORMATION
  Report Type: Spontaneous
  Country: US (occurrence: US)
  Receive Date: 20180807
  Receipt Date: 20180815
  Transmission Date: 20181010
  Serious: Yes (Hospitalization)
  Sender: FDA-Public Use
  Company Number: US-CELGENEUS-USA-20180800219

PATIENT
  Age: 19 Year
  Sex: Male

DRUGS (4)
  1. THALOMID [Suspect]
     Active Substance: THALIDOMIDE
     Dosage: 50 MILLIGRAM
     Route: 048
     Dates: start: 20180122
  2. THALOMID [Suspect]
     Active Substance: THALIDOMIDE
     Indication: CROHN^S DISEASE
     Dosage: 150 MILLIGRAM
     Route: 048
     Dates: start: 201401
  3. THALOMID [Suspect]
     Active Substance: THALIDOMIDE
     Indication: CROHN^S DISEASE
     Dosage: 100 MILLIGRAM
     Route: 048
     Dates: start: 201408
  4. THALOMID [Suspect]
     Active Substance: THALIDOMIDE
     Dosage: 50 MILLIGRAM
     Route: 048
     Dates: start: 201501

REACTIONS (1)
  - Intestinal obstruction [Recovered/Resolved]

NARRATIVE: CASE EVENT DATE: 20180723
